FAERS Safety Report 8227215-9 (Version None)
Quarter: 2012Q1

REPORT INFORMATION
  Report Type: 
  Country: None (occurrence: None)
  Receive Date: 20120322
  Receipt Date: 20120313
  Transmission Date: 20120608
  Serious: Yes (Other)
  Sender: FDA-Public Use
  Company Number: RS-JNJFOC-20120308205

PATIENT

DRUGS (1)
  1. RISPERDAL CONSTA [Suspect]
     Indication: SCHIZOPHRENIA
     Dosage: 38 +/- 2 MG DURING 6-36 MONTHS
     Route: 030

REACTIONS (4)
  - HYPOGONADISM [None]
  - HYPERPROLACTINAEMIA [None]
  - WEIGHT INCREASED [None]
  - LEPTIN LEVEL INCREASED [None]
